FAERS Safety Report 25752105 (Version 1)
Quarter: 2025Q3

REPORT INFORMATION
  Report Type: Spontaneous
  Country: US (occurrence: US)
  Receive Date: 20250902
  Receipt Date: 20250902
  Transmission Date: 20251021
  Serious: No
  Sender: Alora Pharma
  Company Number: US-OSMOTICA PHARMACEUTICALS-2025ALO00081

PATIENT
  Sex: Female

DRUGS (3)
  1. HYDROMORPHONE HYDROCHLORIDE [Suspect]
     Active Substance: HYDROMORPHONE HYDROCHLORIDE
     Indication: Back pain
     Dosage: 12 MG, 1X/DAY [DISPENSED 23-JAN-2025]
     Route: 048
  2. HYDROMORPHONE HYDROCHLORIDE [Suspect]
     Active Substance: HYDROMORPHONE HYDROCHLORIDE
     Indication: Arthralgia
     Dosage: 12 MG, 1X/DAY [DISPENSED 20-FEB-2025]
     Route: 048
  3. OXYCODONE [Concomitant]
     Active Substance: OXYCODONE

REACTIONS (5)
  - Back pain [Unknown]
  - Faeces discoloured [Unknown]
  - Product residue present [Not Recovered/Not Resolved]
  - Drug ineffective [Unknown]
  - Incorrect dose administered by product [Unknown]

NARRATIVE: CASE EVENT DATE: 20250101
